FAERS Safety Report 12332667 (Version 1)
Quarter: 2016Q2

REPORT INFORMATION
  Report Type: Spontaneous
  Country: IT (occurrence: IT)
  Receive Date: 20160504
  Receipt Date: 20160504
  Transmission Date: 20160815
  Serious: Yes (Hospitalization, Other)
  Sender: FDA-Public Use
  Company Number: IT-MYLANLABS-2016M1017757

PATIENT

DRUGS (2)
  1. IPRATROPIUM/SALBUTAMOL [Suspect]
     Active Substance: ALBUTEROL\IPRATROPIUM BROMIDE
     Indication: PRODUCT USED FOR UNKNOWN INDICATION
     Dosage: 5 ML
     Route: 048
  2. AMOXICILLIN/CLAVULANIC ACID [Suspect]
     Active Substance: AMOXICILLIN\CLAVULANIC ACID
     Indication: PYREXIA

REACTIONS (10)
  - Dry mouth [Recovered/Resolved]
  - Irritability [Recovered/Resolved]
  - Cough [Recovered/Resolved]
  - Agitation [Recovered/Resolved]
  - Tachypnoea [Recovered/Resolved]
  - Blood glucose increased [Unknown]
  - Rash [Recovered/Resolved]
  - Sinus tachycardia [Unknown]
  - Hyperpyrexia [Recovered/Resolved]
  - Drug prescribing error [Recovered/Resolved]
